FAERS Safety Report 8829396 (Version 1)
Quarter: 2012Q4

REPORT INFORMATION
  Report Type: Spontaneous
  Country: US (occurrence: None)
  Receive Date: 20121005
  Receipt Date: 20121005
  Transmission Date: 20130627
  Serious: No
  Sender: FDA-Public Use
  Company Number: None

PATIENT
  Age: 23 Year
  Sex: Female
  Weight: 56.7 kg

DRUGS (4)
  1. AMPHETAMINE SALTS [Suspect]
     Indication: ADHD
     Route: 048
     Dates: start: 200603
  2. AMPHETAMINE SALTS [Suspect]
     Indication: NARCOLEPSY
     Route: 048
     Dates: start: 200603
  3. AMPHETAMINE SALTS [Suspect]
     Indication: ADHD
     Dates: start: 201103
  4. AMPHETAMINE SALTS [Suspect]
     Indication: NARCOLEPSY
     Dates: start: 201103

REACTIONS (3)
  - Road traffic accident [None]
  - Euphoric mood [None]
  - Loss of employment [None]
